FAERS Safety Report 5338770-0 (Version None)
Quarter: 2007Q2

REPORT INFORMATION
  Report Type: 
  Country: None (occurrence: None)
  Receive Date: 20070322
  Receipt Date: 20060303
  Transmission Date: 20071010
  Serious: Yes (Other)
  Sender: FDA-Public Use
  Company Number: 200610964BCC

PATIENT
  Age: 77 Year
  Sex: Male
  Weight: 91.6266 kg

DRUGS (7)
  1. ALEVE (CAPLET) [Suspect]
     Indication: ARTHRITIS
     Dosage: SEE IMAGE
     Route: 048
     Dates: start: 20040101
  2. ALEVE (CAPLET) [Suspect]
     Indication: NECK PAIN
     Dosage: SEE IMAGE
     Route: 048
     Dates: start: 20040101
  3. ALEVE (CAPLET) [Suspect]
     Indication: ARTHRITIS
     Dosage: SEE IMAGE
     Route: 048
     Dates: start: 20060228
  4. ALEVE (CAPLET) [Suspect]
     Indication: NECK PAIN
     Dosage: SEE IMAGE
     Route: 048
     Dates: start: 20060228
  5. COUMADIN [Concomitant]
  6. THYROID TAB [Concomitant]
  7. WATER PILL [Concomitant]

REACTIONS (1)
  - BLOOD URINE PRESENT [None]
